FAERS Safety Report 11466922 (Version 3)
Quarter: 2016Q1

REPORT INFORMATION
  Report Type: Spontaneous
  Country: US (occurrence: US)
  Receive Date: 20150908
  Receipt Date: 20160219
  Transmission Date: 20160525
  Serious: Yes (Hospitalization, Other)
  Sender: FDA-Public Use
  Company Number: US-CIPLA LTD.-2015US07005

PATIENT

DRUGS (3)
  1. ATENOLOL. [Suspect]
     Active Substance: ATENOLOL
     Dosage: 500 MG, UNK
     Route: 065
  2. AMLODIPINE [Suspect]
     Active Substance: AMLODIPINE BESYLATE
     Dosage: 200 MG, UNK
     Route: 065
  3. VALSARTAN. [Suspect]
     Active Substance: VALSARTAN
     Dosage: 375 MG, UNK
     Route: 065

REACTIONS (10)
  - Shock [Recovered/Resolved]
  - Lactic acidosis [Recovered/Resolved]
  - Pulmonary oedema [Recovered/Resolved]
  - Overdose [Recovered/Resolved]
  - Haemodynamic instability [Recovered/Resolved]
  - Lethargy [Recovered/Resolved]
  - Poisoning [Recovered/Resolved]
  - Mental status changes [Recovered/Resolved]
  - Oliguria [Recovered/Resolved]
  - Renal failure [Recovered/Resolved]
